FAERS Safety Report 17677121 (Version 1)
Quarter: 2020Q2

REPORT INFORMATION
  Report Type: Report from Study
  Country: US (occurrence: US)
  Receive Date: 20200416
  Receipt Date: 20200416
  Transmission Date: 20200714
  Serious: Yes (Other)
  Sender: FDA-Public Use
  Company Number: US-GILEAD-2020-0459417

PATIENT
  Age: 48 Year
  Sex: Male

DRUGS (1)
  1. EMTRICITABINE/TENOFOVIR ALAFENAMIDE [Suspect]
     Active Substance: EMTRICITABINE\TENOFOVIR
     Indication: PROPHYLAXIS
     Dosage: 225 MG, QD
     Route: 048
     Dates: start: 201909, end: 20200408

REACTIONS (2)
  - Product use issue [Not Recovered/Not Resolved]
  - Chronic hepatitis B [Not Recovered/Not Resolved]

NARRATIVE: CASE EVENT DATE: 20200408
